FAERS Safety Report 7306235-2 (Version None)
Quarter: 2011Q1

REPORT INFORMATION
  Report Type: 
  Country: None (occurrence: None)
  Receive Date: 20110222
  Receipt Date: 20110218
  Transmission Date: 20110831
  Serious: Yes (Disabling, Congenital Anomaly, Other)
  Sender: FDA-Public Use
  Company Number: GXKR2011DE00965

PATIENT
  Sex: Male

DRUGS (1)
  1. VALPROIC ACID [Suspect]
     Dosage: UNK MG, UNK
     Route: 064

REACTIONS (8)
  - DYSMORPHISM [None]
  - DEVELOPMENTAL DELAY [None]
  - DRUG EXPOSURE DURING PREGNANCY [None]
  - EPILEPSY [None]
  - GASTROINTESTINAL MALFORMATION [None]
  - CONGENITAL SMALL INTESTINAL ATRESIA [None]
  - PACHYGYRIA [None]
  - ATRIAL SEPTAL DEFECT [None]
